FAERS Safety Report 4792399-1 (Version None)
Quarter: 2005Q4

REPORT INFORMATION
  Report Type: 
  Country: None (occurrence: None)
  Receive Date: 20051010
  Receipt Date: 20050629
  Transmission Date: 20060501
  Serious: Yes (Disabling)
  Sender: FDA-Public Use
  Company Number: JP-GILEAD-2005-0008466

PATIENT
  Sex: Male

DRUGS (4)
  1. VIREAD [Suspect]
     Indication: HIV INFECTION
     Route: 048
     Dates: start: 20040608
  2. EPIVIR [Concomitant]
     Indication: HIV INFECTION
     Dates: start: 20020603
  3. SUSTIVA [Concomitant]
     Indication: HIV INFECTION
     Dates: start: 20020603
  4. COTRIM [Concomitant]
     Dates: start: 20040401

REACTIONS (3)
  - ALANINE AMINOTRANSFERASE INCREASED [None]
  - ASPARTATE AMINOTRANSFERASE INCREASED [None]
  - GOUT [None]
